FAERS Safety Report 5064159-8 (Version None)
Quarter: 2006Q3

REPORT INFORMATION
  Report Type: 
  Country: None (occurrence: None)
  Receive Date: 20060728
  Receipt Date: 20051219
  Transmission Date: 20061208
  Serious: No
  Sender: FDA-Public Use
  Company Number: US-GLAXOSMITHKLINE-A0586280A

PATIENT
  Age: 2 Month
  Sex: Female
  Weight: 6.4 kg

DRUGS (2)
  1. ZANTAC [Suspect]
     Dosage: 1MGK PER DAY
     Route: 048
     Dates: start: 20051206
  2. NO CONCURRENT MEDICATION [Concomitant]

REACTIONS (3)
  - HYPOTONIA [None]
  - MOVEMENT DISORDER [None]
  - SOMNOLENCE [None]
